FAERS Safety Report 8189403-X (Version None)
Quarter: 2012Q1

REPORT INFORMATION
  Report Type: 
  Country: None (occurrence: None)
  Receive Date: 20120307
  Receipt Date: 20120222
  Transmission Date: 20120608
  Serious: Yes (Hospitalization)
  Sender: FDA-Public Use
  Company Number: SE-NAPPMUNDI-GBR-2012-0009819

PATIENT
  Sex: Female

DRUGS (14)
  1. MORPHINE SULFATE [Suspect]
     Indication: PROCEDURAL PAIN
     Dosage: 40 MG, DAILY
     Route: 048
     Dates: start: 20070101, end: 20110401
  2. POTASSIUM CHLORIDE [Concomitant]
  3. EMGESAN [Concomitant]
  4. LYRICA [Concomitant]
  5. ASPIRIN [Concomitant]
  6. SIMVASTATIN [Concomitant]
  7. ENALAPRIL MALEATE [Concomitant]
  8. FOLACIN                            /00024201/ [Concomitant]
  9. METFORMIN HCL [Concomitant]
  10. ACETAMINOPHEN [Concomitant]
  11. MORPHINE SULFATE [Suspect]
     Indication: NEURALGIA
  12. HYDROXOCOBALAMIN [Concomitant]
  13. FUROSEMIDE [Concomitant]
  14. NOVOMIX [Concomitant]

REACTIONS (3)
  - FALL [None]
  - MYOCLONUS [None]
  - MUSCLE TWITCHING [None]
